FAERS Safety Report 26072673 (Version 1)
Quarter: 2025Q4

REPORT INFORMATION
  Report Type: Spontaneous
  Country: KR (occurrence: KR)
  Receive Date: 20251120
  Receipt Date: 20251120
  Transmission Date: 20260117
  Serious: Yes (Other)
  Sender: GLAXOSMITHKLINE
  Company Number: KR-GSK-KR2025APC146819

PATIENT
  Sex: Female

DRUGS (2)
  1. ALBUTEROL [Suspect]
     Active Substance: ALBUTEROL
     Indication: Cough
     Dosage: UNK UNK, TID E INHALED VENTOLIN ABOUT 10AM~4PM TIMES BETWEEN 3 TIMES.
  2. KEPPRA [Suspect]
     Active Substance: LEVETIRACETAM
     Indication: Epilepsy
     Dosage: 500 MG, BID (TWICE DAILY AT 9 AM AND 9 PM))

REACTIONS (2)
  - Seizure [Unknown]
  - Cough [Unknown]

NARRATIVE: CASE EVENT DATE: 20251001
